FAERS Safety Report 6902412-0 (Version None)
Quarter: 2010Q3

REPORT INFORMATION
  Report Type: 
  Country: None (occurrence: None)
  Receive Date: 20100803
  Receipt Date: 20080519
  Transmission Date: 20110219
  Serious: No
  Sender: FDA-Public Use
  Company Number: US-PFIZER INC-2008028037

PATIENT
  Age: 43 Year
  Sex: Female
  Weight: 164.7 kg

DRUGS (7)
  1. LYRICA [Suspect]
     Indication: PAIN
     Route: 048
     Dates: start: 20080201
  2. LYRICA [Suspect]
     Indication: NEUROPATHY PERIPHERAL
  3. LYRICA [Suspect]
     Indication: OSTEOARTHRITIS
  4. DILTIAZEM [Concomitant]
  5. WARFARIN SODIUM [Concomitant]
  6. PREVACID [Concomitant]
  7. INSULIN ASPART [Concomitant]

REACTIONS (1)
  - PALPITATIONS [None]
